FAERS Safety Report 4282496-1 (Version None)
Quarter: 2004Q1

REPORT INFORMATION
  Report Type: 
  Country: None (occurrence: None)
  Receive Date: 20040129
  Receipt Date: 20040115
  Transmission Date: 20041129
  Serious: Yes (Other)
  Sender: FDA-Public Use
  Company Number: 2004003613

PATIENT
  Age: 76 Year
  Sex: Female

DRUGS (5)
  1. LIPITOR [Suspect]
     Indication: BLOOD CHOLESTEROL INCREASED
     Dosage: 10 MG (DAILY), ORAL
     Route: 048
     Dates: start: 20020301, end: 20021017
  2. BISELECT (HYDROCHLOROTHIAZIDE, BISOPROLOL FUMARATE) [Concomitant]
  3. SERTRALINE HCL [Concomitant]
  4. MULTIVITAMIN [Concomitant]
  5. HERBAL ONT [Concomitant]

REACTIONS (7)
  - ARTHRITIS [None]
  - BLOOD CHOLESTEROL INCREASED [None]
  - CONDITION AGGRAVATED [None]
  - HAEMORRHOIDS [None]
  - MUSCLE CRAMP [None]
  - MUSCULOSKELETAL PAIN [None]
  - TUMOUR MARKER INCREASED [None]
